FAERS Safety Report 6313078-5 (Version None)
Quarter: 2009Q3

REPORT INFORMATION
  Report Type: 
  Country: None (occurrence: None)
  Receive Date: 20090818
  Receipt Date: 20090803
  Transmission Date: 20100115
  Serious: Yes (Hospitalization, Other)
  Sender: FDA-Public Use
  Company Number: PHHY2009DE28748

PATIENT
  Sex: Male

DRUGS (10)
  1. VOLTAREN [Suspect]
     Indication: RHEUMATOID ARTHRITIS
     Dosage: DAILY USAGE
     Route: 048
  2. VOLTAREN [Suspect]
     Indication: POLYNEUROPATHY
  3. MARCUMAR [Concomitant]
  4. LASIX [Concomitant]
  5. ALLOPURINOL [Concomitant]
  6. L-THYROXIN [Concomitant]
  7. XANEF [Concomitant]
  8. DIGIMERCK [Concomitant]
  9. DILATREND [Concomitant]
  10. GLYCOPAC [Concomitant]

REACTIONS (4)
  - COMA [None]
  - GASTRIC HAEMORRHAGE [None]
  - MALLORY-WEISS SYNDROME [None]
  - OESOPHAGITIS [None]
